FAERS Safety Report 7544081-5 (Version None)
Quarter: 2011Q2

REPORT INFORMATION
  Report Type: 
  Country: None (occurrence: None)
  Receive Date: 20110613
  Receipt Date: 20051228
  Transmission Date: 20111010
  Serious: Yes (Death, Other)
  Sender: FDA-Public Use
  Company Number: PHHO2005JP20101

PATIENT
  Sex: Female

DRUGS (2)
  1. GEMZAR [Concomitant]
  2. ZOMETA [Suspect]
     Indication: HYPERCALCAEMIA OF MALIGNANCY
     Dosage: 4 MG
     Route: 042
     Dates: start: 20050829

REACTIONS (3)
  - MALIGNANT PLEURAL EFFUSION [None]
  - BLOOD UREA INCREASED [None]
  - NEOPLASM MALIGNANT [None]
